FAERS Safety Report 11956574 (Version 1)
Quarter: 2016Q1

REPORT INFORMATION
  Report Type: Other
  Country: US (occurrence: US)
  Receive Date: 20160126
  Receipt Date: 20160126
  Transmission Date: 20160526
  Serious: Yes (Hospitalization)
  Sender: FDA-Public Use
  Company Number: US-COL_21797_2016

PATIENT
  Age: 74 Year
  Sex: Female

DRUGS (1)
  1. SOFTSOAP POMEGRANATE + MANGO MOISTURIZING BODY WASH [Suspect]
     Active Substance: COSMETICS
     Indication: PRODUCT USED FOR UNKNOWN INDICATION
     Dosage: LARGE AMOUNTS ON SPONGE/ ONCE DAILY/
     Route: 061
     Dates: end: 201508

REACTIONS (2)
  - Femur fracture [Recovering/Resolving]
  - Fall [Recovered/Resolved]

NARRATIVE: CASE EVENT DATE: 201508
